FAERS Safety Report 6618539-7 (Version None)
Quarter: 2010Q1

REPORT INFORMATION
  Report Type: 
  Country: None (occurrence: None)
  Receive Date: 20100308
  Receipt Date: 20100303
  Transmission Date: 20100710
  Serious: Yes (Hospitalization)
  Sender: FDA-Public Use
  Company Number: US-GILEAD-2010-0027485

PATIENT
  Sex: Female
  Weight: 86.64 kg

DRUGS (18)
  1. LETAIRIS [Suspect]
     Indication: PULMONARY ARTERIAL HYPERTENSION
     Route: 048
     Dates: start: 20080327
  2. SILDENAFIL CITRATE [Concomitant]
  3. LOTRISONE [Concomitant]
  4. BACLOFEN [Concomitant]
  5. HYDROXYCHLOROQUINE SULFATE [Concomitant]
  6. GEODON [Concomitant]
  7. GLUCOPHAGE [Concomitant]
  8. FEXOFENADINE [Concomitant]
  9. CARBAMAZEPINE [Concomitant]
  10. FOLIC ACID [Concomitant]
  11. FLONASE [Concomitant]
  12. METHOTREXATE [Concomitant]
  13. TRAMADOL HCL [Concomitant]
  14. METHADONE [Concomitant]
  15. ALBUTEROL [Concomitant]
  16. ACTOS [Concomitant]
  17. MOTRIN [Concomitant]
  18. LEVOTHYROXINE [Concomitant]

REACTIONS (1)
  - PNEUMONIA VIRAL [None]
